FAERS Safety Report 9841607 (Version 1)
Quarter: 2013Q4

REPORT INFORMATION
  Report Type: Spontaneous
  Country: US (occurrence: None)
  Receive Date: 20131219
  Receipt Date: 20131219
  Transmission Date: 20140711
  Serious: Yes (Hospitalization, Other)
  Sender: FDA-Public Use
  Company Number: 163-20785-13054709

PATIENT
  Age: 67 Year
  Sex: Female

DRUGS (9)
  1. THALOMID [Suspect]
     Indication: PLASMA CELL MYELOMA
     Dosage: 50 MG, 28 IN 28 D, PO
     Route: 048
     Dates: start: 20130305, end: 201305
  2. ACYCLOVIR (ACICLOVIR) [Concomitant]
  3. ASPIRIN LOW DOSE (ACETYLSALICYLIC ACID) [Concomitant]
  4. CALCIUM (CALCIUM) [Concomitant]
  5. CYCLOPHOSPHAMIDE (CYCLOPHOSPHAMIDE) [Concomitant]
  6. DEXAMETHASONE (DEXAMETHASONE) [Concomitant]
  7. FLUCONAZOLE (FLUCONAZOLE) [Concomitant]
  8. FUROSEMIDE (FUROSEMIDE) [Concomitant]
  9. KLOR-CON M20 (POTASSIUM CHLORIDE) [Concomitant]

REACTIONS (1)
  - Drug ineffective [None]
